FAERS Safety Report 25522418 (Version 1)
Quarter: 2025Q3

REPORT INFORMATION
  Report Type: Spontaneous
  Country: EU (occurrence: EU)
  Receive Date: 20250707
  Receipt Date: 20250707
  Transmission Date: 20251020
  Serious: No
  Sender: ALKEM
  Company Number: EU-ALKEM LABORATORIES LIMITED-FR-ALKEM-2022-15437

PATIENT
  Sex: Male

DRUGS (2)
  1. DRONABINOL [Suspect]
     Active Substance: DRONABINOL
     Indication: Neuralgia
     Dosage: 12.5 MILLIGRAM, QD CAPSULE MOLLE (SOFT CAPSULE, 5 CAPSULE IN 3 DAILY INTAKES, 2 IN THE MORNING, 2 AT
     Route: 065
  2. DRONABINOL [Suspect]
     Active Substance: DRONABINOL
     Route: 065
     Dates: start: 20220912, end: 20240420

REACTIONS (4)
  - Amnesia [Unknown]
  - Off label use [Unknown]
  - Product prescribing issue [Unknown]
  - Therapy cessation [Unknown]
